FAERS Safety Report 5263533-4 (Version None)
Quarter: 2007Q1

REPORT INFORMATION
  Report Type: 
  Country: None (occurrence: None)
  Receive Date: 20070313
  Receipt Date: 20070309
  Transmission Date: 20070707
  Serious: Yes (Other)
  Sender: FDA-Public Use
  Company Number: BE-BRISTOL-MYERS SQUIBB COMPANY-13709183

PATIENT
  Sex: Female

DRUGS (1)
  1. FOSINOPRIL SODIUM [Suspect]
     Indication: CARDIAC DISORDER

REACTIONS (4)
  - ABDOMINAL PAIN [None]
  - ASCITES [None]
  - DIARRHOEA [None]
  - VOMITING [None]
